FAERS Safety Report 6868948-6 (Version None)
Quarter: 2010Q3

REPORT INFORMATION
  Report Type: 
  Country: None (occurrence: None)
  Receive Date: 20100721
  Receipt Date: 20100721
  Transmission Date: 20110219
  Serious: Yes (Life-Threatening, Hospitalization)
  Sender: FDA-Public Use
  Company Number: None

PATIENT
  Sex: Female
  Weight: 54.5 kg

DRUGS (1)
  1. CYSTEX [Suspect]
     Indication: URINARY TRACT INFECTION
     Dosage: 2 TABLETS 3X/DAY (TOOK 1X) ORAL - 047
     Route: 048
     Dates: start: 20100713

REACTIONS (9)
  - DIARRHOEA [None]
  - DIZZINESS [None]
  - DRUG HYPERSENSITIVITY [None]
  - DYSPNOEA [None]
  - HEADACHE [None]
  - HYPOAESTHESIA ORAL [None]
  - NAUSEA [None]
  - SYNCOPE [None]
  - TREMOR [None]
